FAERS Safety Report 16223704 (Version 2)
Quarter: 2019Q3

REPORT INFORMATION
  Report Type: Spontaneous
  Country: US (occurrence: US)
  Receive Date: 20190422
  Receipt Date: 20190925
  Transmission Date: 20191004
  Serious: Yes (Hospitalization, Other)
  Sender: FDA-Public Use
  Company Number: US-PFIZER INC-2019169142

PATIENT
  Age: 53 Year
  Sex: Male

DRUGS (9)
  1. ACETAMINOPHEN. [Suspect]
     Active Substance: ACETAMINOPHEN
     Dosage: 30 MG, 1X/DAY
  2. BENEPROTEIN [Suspect]
     Active Substance: DIETARY SUPPLEMENT
     Indication: WEIGHT INCREASED
     Dosage: UNK (6 GRAM 1 SCOOP)
  3. CEVIMELINE. [Concomitant]
     Active Substance: CEVIMELINE
     Dosage: 30 MG, 1X/DAY
  4. AMLODIPINE [Concomitant]
     Active Substance: AMLODIPINE BESYLATE
     Dosage: 5 MG, 1X/DAY
  5. NICOTINE. [Concomitant]
     Active Substance: NICOTINE
     Dosage: 14 MG 24 HR PATCH
  6. BOOST [Suspect]
     Active Substance: DIETARY SUPPLEMENT
     Indication: WEIGHT INCREASED
     Dosage: 2.25 G, 1X/DAY
  7. CLOPIDOGREL [Concomitant]
     Active Substance: CLOPIDOGREL BISULFATE
     Dosage: 75 MG, 1X/DAY
  8. LYRICA CR [Suspect]
     Active Substance: PREGABALIN
     Indication: PAIN
     Dosage: 50 MG, 1X/DAY
  9. CETIRIZINE [Suspect]
     Active Substance: CETIRIZINE HYDROCHLORIDE
     Dosage: 10 MG, 1X/DAY

REACTIONS (4)
  - Squamous cell carcinoma of head and neck [Not Recovered/Not Resolved]
  - Throat cancer [Not Recovered/Not Resolved]
  - Sepsis [Not Recovered/Not Resolved]
  - Cellulitis [Not Recovered/Not Resolved]

NARRATIVE: CASE EVENT DATE: 20141223
